FAERS Safety Report 11569681 (Version 1)
Quarter: 2015Q3

REPORT INFORMATION
  Report Type: Spontaneous
  Country: US (occurrence: None)
  Receive Date: 20150928
  Receipt Date: 20150928
  Transmission Date: 20151125
  Serious: Yes (Hospitalization)
  Sender: FDA-Public Use
  Company Number: None

PATIENT
  Age: 15 Year
  Sex: Female
  Weight: 63.4 kg

DRUGS (1)
  1. SULFAMETHOXAZOLE/TRIMETHOPRIM [Suspect]
     Active Substance: SULFAMETHOXAZOLE\TRIMETHOPRIM
     Indication: URINARY TRACT INFECTION
     Dates: start: 20150109, end: 20150112

REACTIONS (6)
  - Hypotension [None]
  - Toxic shock syndrome [None]
  - Malaise [None]
  - Dermatitis exfoliative [None]
  - Drug reaction with eosinophilia and systemic symptoms [None]
  - Photophobia [None]

NARRATIVE: CASE EVENT DATE: 20150112
